FAERS Safety Report 23340151 (Version 1)
Quarter: 2023Q4

REPORT INFORMATION
  Report Type: Spontaneous
  Country: MY (occurrence: MY)
  Receive Date: 20231227
  Receipt Date: 20231227
  Transmission Date: 20240109
  Serious: Yes (Other)
  Sender: FDA-Public Use
  Company Number: MY-AUROBINDO-AUR-APL-2023-079440

PATIENT
  Age: 63 Year
  Sex: Female

DRUGS (1)
  1. PIPERACILLIN SODIUM\TAZOBACTAM SODIUM [Suspect]
     Active Substance: PIPERACILLIN SODIUM\TAZOBACTAM SODIUM
     Indication: Septic shock
     Dosage: NULL G GRAM (S)
     Route: 042

REACTIONS (1)
  - Urticarial vasculitis [Recovered/Resolved]
